FAERS Safety Report 6668416-0 (Version None)
Quarter: 2010Q2

REPORT INFORMATION
  Report Type: 
  Country: None (occurrence: None)
  Receive Date: 20100406
  Receipt Date: 20100324
  Transmission Date: 20101027
  Serious: Yes (Other)
  Sender: FDA-Public Use
  Company Number: PHHY2010AU15139

PATIENT
  Sex: Female
  Weight: 104.4 kg

DRUGS (13)
  1. CLOZARIL [Suspect]
     Indication: SCHIZOPHRENIA
     Dosage: 300 MG, UNK
     Route: 048
     Dates: start: 19960426, end: 20100311
  2. VENLAFAXINE [Concomitant]
     Indication: DEPRESSION
     Dosage: 150 MG, BID
     Dates: end: 20081201
  3. RANITIDINE [Concomitant]
     Dosage: 150 MG, BID
     Dates: start: 20050101
  4. MELOXICAM [Concomitant]
     Dosage: 7.5 MG MANE
  5. PARACETAMOL [Concomitant]
  6. COLOXYL [Concomitant]
  7. SENNA [Concomitant]
  8. DULCOLAX [Concomitant]
     Dosage: UNK
  9. KENACOMB [Concomitant]
     Dosage: UNK
  10. MOVICOL [Concomitant]
     Dosage: UNK
  11. MYLANTA                                 /AUS/ [Concomitant]
     Dosage: UNK
  12. METOCLOPRAMIDE [Concomitant]
     Dosage: UNK
  13. GASTROSTOP [Concomitant]
     Dosage: UNK

REACTIONS (5)
  - BLOOD GLUCOSE INCREASED [None]
  - ELECTROCARDIOGRAM QT PROLONGED [None]
  - LEFT VENTRICULAR DYSFUNCTION [None]
  - THERAPY CESSATION [None]
  - URINARY TRACT INFECTION [None]
